FAERS Safety Report 24800804 (Version 1)
Quarter: 2025Q1

REPORT INFORMATION
  Report Type: Spontaneous
  Country: US (occurrence: US)
  Receive Date: 20250102
  Receipt Date: 20250102
  Transmission Date: 20250408
  Serious: Yes (Hospitalization)
  Sender: PFIZER
  Company Number: US-PFIZER INC-202400334418

PATIENT
  Age: 72 Year
  Sex: Female

DRUGS (7)
  1. IBRANCE [Suspect]
     Active Substance: PALBOCICLIB
     Route: 048
     Dates: start: 20241223
  2. ELIQUIS [Concomitant]
     Active Substance: APIXABAN
  3. MIRALAX [Concomitant]
     Active Substance: POLYETHYLENE GLYCOL 3350
  4. OXYCODONE [Concomitant]
     Active Substance: OXYCODONE
  5. REPATHA [Concomitant]
     Active Substance: EVOLOCUMAB
  6. RESTASIS [Concomitant]
     Active Substance: CYCLOSPORINE
  7. SENNA LEAF [Concomitant]
     Active Substance: SENNA LEAF

REACTIONS (7)
  - Pain [Not Recovered/Not Resolved]
  - Disorientation [Not Recovered/Not Resolved]
  - Fluid retention [Not Recovered/Not Resolved]
  - Condition aggravated [Not Recovered/Not Resolved]
  - Nausea [Not Recovered/Not Resolved]
  - Vomiting [Not Recovered/Not Resolved]
  - Dysstasia [Unknown]

NARRATIVE: CASE EVENT DATE: 20241223
